FAERS Safety Report 9372008 (Version 1)
Quarter: 2013Q2

REPORT INFORMATION
  Report Type: Spontaneous
  Country: GB (occurrence: None)
  Receive Date: 20130624
  Receipt Date: 20130624
  Transmission Date: 20140414
  Serious: Yes (Other)
  Sender: FDA-Public Use
  Company Number: GER/UKI/13/0030039

PATIENT
  Age: 57 Year
  Sex: Female
  Weight: 77.1 kg

DRUGS (7)
  1. ATORVASTATIN (ATORVASTATIN) [Suspect]
     Indication: PRODUCT USED FOR UNKNOWN INDICATION
     Dates: start: 20130228
  2. CHLORPHENAMINE (CHLORPHENAMINE) [Concomitant]
  3. LORATIDINE [Concomitant]
  4. MOMETASONE (MOMETASONE) [Concomitant]
  5. PREMIQUE (PROVELLA-14) [Concomitant]
  6. RAMIPRIL (RAMIPRIL) [Concomitant]
  7. SYMBICORT (BUDESONIDE W/ FORMOTEROL FUMARATE) [Concomitant]

REACTIONS (6)
  - Constipation [None]
  - Headache [None]
  - Pruritus [None]
  - Nausea [None]
  - Epistaxis [None]
  - Oropharyngeal pain [None]
